FAERS Safety Report 11588984 (Version 1)
Quarter: 2015Q4

REPORT INFORMATION
  Report Type: Spontaneous
  Country: US (occurrence: US)
  Receive Date: 20151002
  Receipt Date: 20151002
  Transmission Date: 20160304
  Serious: No
  Sender: FDA-Public Use
  Company Number: US-HORIZON-PEN-0170-2015

PATIENT
  Age: 54 Year
  Sex: Female

DRUGS (1)
  1. PENNSAID [Suspect]
     Active Substance: DICLOFENAC SODIUM
     Indication: PELVIC PAIN
     Dosage: TO PELVIC AREA AS DIRECTED FOR PAIN
     Dates: start: 201506

REACTIONS (1)
  - Off label use [Unknown]
